FAERS Safety Report 7658929-7 (Version None)
Quarter: 2011Q3

REPORT INFORMATION
  Report Type: 
  Country: None (occurrence: None)
  Receive Date: 20110805
  Receipt Date: 20110722
  Transmission Date: 20111222
  Serious: Yes (Hospitalization)
  Sender: FDA-Public Use
  Company Number: FR-CELGENEUS-056-21880-11072435

PATIENT
  Sex: Female
  Weight: 62 kg

DRUGS (6)
  1. REVLIMID [Suspect]
     Indication: B-CELL LYMPHOMA
     Dosage: 20 MILLIGRAM
     Route: 048
     Dates: start: 20110302, end: 20110624
  2. DOXORUBICIN HCL [Suspect]
     Indication: B-CELL LYMPHOMA
     Dosage: 50 MILLIGRAM/SQ. METER
     Route: 041
     Dates: start: 20110302, end: 20110615
  3. VINCRISTINE [Suspect]
     Indication: B-CELL LYMPHOMA
     Dosage: 1.4 MILLIGRAM/SQ. METER
     Route: 041
     Dates: start: 20110302, end: 20110615
  4. CYCLOPHOSPHAMIDE [Suspect]
     Indication: B-CELL LYMPHOMA
     Dosage: 750 MILLIGRAM/SQ. METER
     Route: 041
     Dates: start: 20110302, end: 20110615
  5. RITUXIMAB [Suspect]
     Indication: B-CELL LYMPHOMA
     Dosage: 375 MILLIGRAM/SQ. METER
     Route: 041
     Dates: start: 20110302, end: 20110615
  6. PREDNISONE [Suspect]
     Indication: B-CELL LYMPHOMA
     Dosage: 40 MILLIGRAM/SQ. METER
     Route: 048
     Dates: start: 20110302, end: 20110615

REACTIONS (1)
  - CYSTITIS HAEMORRHAGIC [None]
